FAERS Safety Report 9671601 (Version 1)
Quarter: 2013Q4

REPORT INFORMATION
  Report Type: Spontaneous
  Country: CH (occurrence: CH)
  Receive Date: 20131106
  Receipt Date: 20131106
  Transmission Date: 20140711
  Serious: Yes (Hospitalization)
  Sender: FDA-Public Use
  Company Number: CH-ROCHE-1297171

PATIENT
  Age: 76 Year
  Sex: Female

DRUGS (3)
  1. ZELBORAF [Suspect]
     Indication: PLASMA CELL MYELOMA
     Route: 048
     Dates: start: 20130912
  2. PANTOZOL (SWITZERLAND) [Concomitant]
     Route: 048
  3. VOTUM PLUS [Concomitant]
     Route: 048

REACTIONS (1)
  - Acute coronary syndrome [Not Recovered/Not Resolved]
